FAERS Safety Report 21552776 (Version 3)
Quarter: 2024Q4

REPORT INFORMATION
  Report Type: Spontaneous
  Country: BR (occurrence: BR)
  Receive Date: 20221104
  Receipt Date: 20241001
  Transmission Date: 20250115
  Serious: Yes (Other)
  Sender: CELLTRION
  Company Number: BR-CELLTRION INC.-2022BR017998

PATIENT

DRUGS (5)
  1. INFLIXIMAB [Suspect]
     Active Substance: INFLIXIMAB
     Indication: Crohn^s disease
     Dosage: UNK
     Route: 042
  2. INFLIXIMAB [Suspect]
     Active Substance: INFLIXIMAB
     Dosage: 7 AMPOULES EVERY 2 MONTHS
     Route: 042
     Dates: start: 20220701
  3. INFLIXIMAB [Suspect]
     Active Substance: INFLIXIMAB
     Dosage: 7 AMPOULES EVERY 2 MONTHS
     Route: 042
     Dates: start: 20240701
  4. INFLIXIMAB [Suspect]
     Active Substance: INFLIXIMAB
     Dosage: 7 AMPOULES EVERY 2 MONTHS
     Route: 042
     Dates: start: 20240923
  5. DIPYRONE [Concomitant]
     Active Substance: DIPYRONE
     Indication: Arthralgia
     Dosage: UNK
     Route: 048

REACTIONS (7)
  - Cataract [Unknown]
  - Wrist fracture [Unknown]
  - Varicose vein [Unknown]
  - Visual impairment [Unknown]
  - Pain in extremity [Unknown]
  - Asthenia [Unknown]
  - Arthralgia [Unknown]

NARRATIVE: CASE EVENT DATE: 20240701
